FAERS Safety Report 18583191 (Version 1)
Quarter: 2020Q4

REPORT INFORMATION
  Report Type: Other
  Country: IN (occurrence: IN)
  Receive Date: 20201206
  Receipt Date: 20201206
  Transmission Date: 20210114
  Serious: Yes (Hospitalization)
  Sender: FDA-Public Use
  Company Number: IN-DEXPHARM-20201107

PATIENT
  Age: 50 Year
  Sex: Female

DRUGS (5)
  1. PANTOPRAZOLE [Concomitant]
     Active Substance: PANTOPRAZOLE
     Dosage: DAILY DOSE: 40 MG MILLGRAM(S) EVERY DAYS
  2. CEFTRIAXONE. [Concomitant]
     Active Substance: CEFTRIAXONE
     Dosage: DAILY DOSE: 2 G GRAM(S) EVERY DAYS
  3. PARACETAMOL [Concomitant]
     Active Substance: ACETAMINOPHEN
     Dosage: DAILY DOSE: 1500 MG MILLGRAM(S) EVERY DAYS
  4. DICLOFENAC [Suspect]
     Active Substance: DICLOFENAC
     Indication: PAIN
  5. ASTHALIN [Concomitant]
     Active Substance: ALBUTEROL

REACTIONS (3)
  - Pain [Recovering/Resolving]
  - Pain in extremity [Recovering/Resolving]
  - Chills [Recovering/Resolving]
